FAERS Safety Report 16349497 (Version 5)
Quarter: 2020Q3

REPORT INFORMATION
  Report Type: Report from Study
  Country: US (occurrence: US)
  Receive Date: 20190523
  Receipt Date: 20200814
  Transmission Date: 20201102
  Serious: Yes (Hospitalization)
  Sender: FDA-Public Use
  Company Number: US-ACTELION-A-US2017-150304

PATIENT
  Age: 86 Year
  Sex: Female
  Weight: 101.59 kg

DRUGS (3)
  1. AMLODIPINE [Concomitant]
     Active Substance: AMLODIPINE BESYLATE
  2. AZITHROMYCIN ANHYDROUS. [Concomitant]
     Active Substance: AZITHROMYCIN ANHYDROUS
  3. OPSUMIT [Suspect]
     Active Substance: MACITENTAN
     Indication: PULMONARY ARTERIAL HYPERTENSION
     Dosage: 10 MG, QD
     Route: 048
     Dates: start: 20150130

REACTIONS (9)
  - Hospitalisation [Unknown]
  - Decreased appetite [Unknown]
  - Atrial fibrillation [Unknown]
  - Pain [Unknown]
  - Nausea [Unknown]
  - Productive cough [Unknown]
  - Malaise [Unknown]
  - Product dose omission issue [Unknown]
  - Back injury [Unknown]

NARRATIVE: CASE EVENT DATE: 20191222
